FAERS Safety Report 9691355 (Version 1)
Quarter: 2013Q4

REPORT INFORMATION
  Report Type: Spontaneous
  Country: FR (occurrence: FR)
  Receive Date: 20131115
  Receipt Date: 20131115
  Transmission Date: 20140711
  Serious: Yes (Hospitalization)
  Sender: FDA-Public Use
  Company Number: FR-BAYER-2013-135342

PATIENT
  Age: 85 Year
  Sex: Male

DRUGS (7)
  1. CIFLOX [Suspect]
     Indication: BRONCHOPULMONARY DISEASE
     Dosage: 500 MG, BID
     Route: 048
     Dates: start: 20130829
  2. PREVISCAN [Interacting]
     Dosage: 30 MG, QD
     Route: 048
     Dates: end: 20130901
  3. AUGMENTIN [Suspect]
     Indication: BRONCHOPULMONARY DISEASE
     Dosage: 1 G, TID
     Route: 048
     Dates: start: 20130829
  4. RASILEZ HCT [Concomitant]
  5. XANAX [Concomitant]
  6. ATHYMIL [Concomitant]
  7. XATRAL XL [Concomitant]
     Indication: URINARY RETENTION

REACTIONS (2)
  - Scrotal haematoma [Recovered/Resolved]
  - International normalised ratio increased [Recovered/Resolved]
